FAERS Safety Report 18812701 (Version 1)
Quarter: 2021Q1

REPORT INFORMATION
  Report Type: Other
  Country: US (occurrence: US)
  Receive Date: 20210131
  Receipt Date: 20210131
  Transmission Date: 20210419
  Serious: No
  Sender: FDA-Public Use
  Company Number: US-ROCHE-2758984

PATIENT
  Sex: Male

DRUGS (1)
  1. OCREVUS [Suspect]
     Active Substance: OCRELIZUMAB
     Indication: RELAPSING MULTIPLE SCLEROSIS
     Dosage: (PRESCRIBED: INITIAL DOSE DAY 1 INFUSE 300 MG IV,DAY 15:300 MG IV, SUBSEQUENT DOSE INFUSE 600 MG IV
     Route: 042

REACTIONS (1)
  - COVID-19 [Unknown]
